FAERS Safety Report 7606608-4 (Version None)
Quarter: 2011Q3

REPORT INFORMATION
  Report Type: 
  Country: None (occurrence: None)
  Receive Date: 20110713
  Receipt Date: 20110705
  Transmission Date: 20111222
  Serious: Yes (Disabling, Other)
  Sender: FDA-Public Use
  Company Number: PHHY2009FR22081

PATIENT
  Sex: Female
  Weight: 50 kg

DRUGS (5)
  1. RITALIN [Suspect]
     Dosage: 10 MG, IN THE EVENING
     Route: 048
  2. YAZ [Concomitant]
     Indication: DYSMENORRHOEA
     Dosage: UNK UKN, UNK
     Dates: start: 20070901
  3. RITALIN [Suspect]
     Indication: ATTENTION DEFICIT/HYPERACTIVITY DISORDER
     Dosage: 30 MG, IN MORNING
     Route: 048
     Dates: start: 20040701, end: 20090406
  4. RITALIN [Suspect]
     Dosage: 18 MG, UNK
     Dates: start: 20051101, end: 20051201
  5. RISPERIDONE [Concomitant]
     Dosage: 0.25 MG, UNK
     Dates: end: 20060901

REACTIONS (14)
  - WEIGHT DECREASED [None]
  - HEMIPLEGIA [None]
  - CONSTIPATION [None]
  - HYPERTONIA [None]
  - SLEEP DISORDER [None]
  - TOOTH DISORDER [None]
  - INSOMNIA [None]
  - TETANY [None]
  - VIITH NERVE PARALYSIS [None]
  - CONVERSION DISORDER [None]
  - TREMOR [None]
  - JOINT INSTABILITY [None]
  - EPIPHYSEAL DISORDER [None]
  - PAIN IN EXTREMITY [None]
